FAERS Safety Report 20155698 (Version 1)
Quarter: 2021Q4

REPORT INFORMATION
  Report Type: Spontaneous
  Country: US (occurrence: US)
  Receive Date: 20211207
  Receipt Date: 20211207
  Transmission Date: 20220303
  Serious: No
  Sender: FDA-Public Use
  Company Number: US-PERRIGO-21US002993

PATIENT
  Sex: Male
  Weight: 117.91 kg

DRUGS (2)
  1. CLOBETASOL PROPIONATE [Suspect]
     Active Substance: CLOBETASOL PROPIONATE
     Indication: Oral lichen planus
     Dosage: 1 PEA SIZED DROP, BID
     Route: 048
  2. CLOBETASOL PROPIONATE [Suspect]
     Active Substance: CLOBETASOL PROPIONATE
     Dosage: 1 PEA SIZED DROP, BID
     Route: 048
     Dates: start: 20210219

REACTIONS (2)
  - Drug ineffective [Unknown]
  - Incorrect route of product administration [Unknown]
